FAERS Safety Report 10523556 (Version 4)
Quarter: 2015Q2

REPORT INFORMATION
  Report Type: Report from Study
  Country: NL (occurrence: NL)
  Receive Date: 20141017
  Receipt Date: 20150515
  Transmission Date: 20150821
  Serious: Yes (Death, Hospitalization, Disabling)
  Sender: FDA-Public Use
  Company Number: NL-ROCHE-1465568

PATIENT
  Age: 57 Year
  Sex: Male

DRUGS (11)
  1. BICNU [Suspect]
     Active Substance: CARMUSTINE
     Indication: CENTRAL NERVOUS SYSTEM LYMPHOMA
     Dosage: MOST RECENT DOSE PRIOR TO EVENT 22/JUL/2014
     Route: 065
     Dates: start: 20140722, end: 20140722
  2. ASCAL [Concomitant]
     Active Substance: CARBASALATE
     Route: 048
     Dates: start: 20140803
  3. COTRIMOXAZOLE [Concomitant]
     Active Substance: SULFAMETHOXAZOLE\TRIMETHOPRIM
     Route: 065
     Dates: start: 20140829
  4. PIPERACILLIN/TAZOBACTAM [Concomitant]
     Active Substance: PIPERACILLIN SODIUM\TAZOBACTAM SODIUM
     Indication: PNEUMONIA
     Route: 042
     Dates: start: 20140827
  5. RITUXIMAB [Suspect]
     Active Substance: RITUXIMAB
     Indication: CENTRAL NERVOUS SYSTEM LYMPHOMA
     Dosage: SECOND DOSE: 25/JUL/2014, THIRD DOSE: 01/AUG/2014, FOURTH DOSE (MOST RECENT DOSE PRIOR TO EVENT): 09
     Route: 042
     Dates: start: 20140723, end: 20140809
  6. METHOTREXATE [Suspect]
     Active Substance: METHOTREXATE
     Indication: CENTRAL NERVOUS SYSTEM LYMPHOMA
     Dosage: MOST RECENT DOSE PRIOR TO EVENT 01/AUG/2014
     Route: 042
     Dates: start: 20140719, end: 20140805
  7. DEXAMETHASON [Suspect]
     Active Substance: DEXAMETHASONE
     Indication: CENTRAL NERVOUS SYSTEM LYMPHOMA
     Dosage: DOSAGE REGIMEN 2X 8 MG
     Route: 048
     Dates: start: 20140714, end: 20140829
  8. VALPROIC ACID. [Concomitant]
     Active Substance: VALPROIC ACID
     Indication: EPILEPSY
  9. TENIPOSIDE. [Suspect]
     Active Substance: TENIPOSIDE
     Indication: CENTRAL NERVOUS SYSTEM LYMPHOMA
     Dosage: MOST RECENT DOSE PRIOR TO EVENT 21/JUL/2014
     Route: 042
     Dates: start: 20140720, end: 20140721
  10. PREDNISONE. [Suspect]
     Active Substance: PREDNISONE
     Indication: CENTRAL NERVOUS SYSTEM LYMPHOMA
     Dosage: MOST RECENT DOSE PRIOR TO EVENT 24/JUL/2014
     Route: 065
     Dates: start: 20140719, end: 20140724
  11. DEXAMETHASON [Suspect]
     Active Substance: DEXAMETHASONE
     Dosage: DOSAGE REGIMEN 2 X 8 MG
     Route: 048
     Dates: start: 20140702

REACTIONS (3)
  - Encephalopathy [Not Recovered/Not Resolved]
  - Opportunistic infection [Fatal]
  - Dysphagia [Not Recovered/Not Resolved]

NARRATIVE: CASE EVENT DATE: 20140815
